FAERS Safety Report 7809955-6 (Version None)
Quarter: 2011Q4

REPORT INFORMATION
  Report Type: 
  Country: None (occurrence: None)
  Receive Date: 20111012
  Receipt Date: 20111010
  Transmission Date: 20120403
  Serious: No
  Sender: FDA-Public Use
  Company Number: US-PFIZER INC-2011241964

PATIENT
  Sex: Female

DRUGS (1)
  1. GEODON [Suspect]
     Indication: ANXIETY
     Dosage: 20 MG IN AM; 60 MG IN PM
     Route: 048
     Dates: start: 20070101

REACTIONS (1)
  - PAIN [None]
